FAERS Safety Report 8428659 (Version 4)
Quarter: 2014Q1

REPORT INFORMATION
  Report Type: Spontaneous
  Country: JP (occurrence: None)
  Receive Date: 20120214
  Receipt Date: 20140224
  Transmission Date: 20141002
  Serious: Yes (Other)
  Sender: FDA-Public Use
  Company Number: ADR-2012-00299

PATIENT
  Age: 85 Year
  Sex: Male
  Weight: 67 kg

DRUGS (1)
  1. GABALON [Suspect]
     Dosage: 240 MCG/DAY

REACTIONS (6)
  - Medical device complication [None]
  - Device breakage [None]
  - Muscle spasticity [None]
  - Implant site extravasation [None]
  - Device connection issue [None]
  - Device material issue [None]
